FAERS Safety Report 5935797-2 (Version None)
Quarter: 2008Q4

REPORT INFORMATION
  Report Type: 
  Country: None (occurrence: None)
  Receive Date: 20081030
  Receipt Date: 20081022
  Transmission Date: 20090506
  Serious: Yes (Other)
  Sender: FDA-Public Use
  Company Number: PHHY2008ZA24359

PATIENT
  Sex: Female

DRUGS (1)
  1. ACLASTA [Suspect]
     Dosage: UNK
     Dates: start: 20081003

REACTIONS (6)
  - BLOOD PRESSURE INCREASED [None]
  - BRONCHITIS [None]
  - CONTUSION [None]
  - CYSTITIS [None]
  - HAEMOPTYSIS [None]
  - KIDNEY INFECTION [None]
